FAERS Safety Report 7771584-0 (Version None)
Quarter: 2011Q3

REPORT INFORMATION
  Report Type: 
  Country: None (occurrence: None)
  Receive Date: 20110922
  Receipt Date: 20101213
  Transmission Date: 20111222
  Serious: No
  Sender: FDA-Public Use
  Company Number: US-ASTRAZENECA-2010SE58867

PATIENT
  Age: 50 Year
  Sex: Female
  Weight: 72.6 kg

DRUGS (1)
  1. SEROQUEL XR [Suspect]
     Indication: BIPOLAR DISORDER
     Route: 048
     Dates: start: 20100101

REACTIONS (3)
  - WEIGHT INCREASED [None]
  - DRUG DOSE OMISSION [None]
  - DEPRESSION [None]
